FAERS Safety Report 19307154 (Version 1)
Quarter: 2021Q2

REPORT INFORMATION
  Report Type: Spontaneous
  Country: IR (occurrence: IR)
  Receive Date: 20210525
  Receipt Date: 20210525
  Transmission Date: 20210717
  Serious: Yes (Death, Other)
  Sender: FDA-Public Use
  Company Number: IR-LUPIN PHARMACEUTICALS INC.-2021-07939

PATIENT
  Age: 19 Year
  Sex: Female

DRUGS (15)
  1. MISOPROSTOL. [Suspect]
     Active Substance: MISOPROSTOL
     Indication: DRUG THERAPY
     Dosage: 50 MICROGRAM
     Route: 060
     Dates: start: 20200516
  2. AZITHROMYCIN ANHYDROUS. [Suspect]
     Active Substance: AZITHROMYCIN ANHYDROUS
     Indication: COVID-19
     Dosage: 500 MILLIGRAM DAY 1 (CAPSULE)
     Route: 065
     Dates: start: 20200523
  3. MAGNESIUM SULFATE. [Suspect]
     Active Substance: MAGNESIUM SULFATE
     Indication: PRODUCT USED FOR UNKNOWN INDICATION
     Dosage: UNK
     Route: 065
  4. AZITHROMYCIN ANHYDROUS. [Suspect]
     Active Substance: AZITHROMYCIN ANHYDROUS
     Dosage: 250 MILLIGRAM DAY 2?5 (CAPSULE)
     Route: 065
     Dates: start: 202005
  5. KALETRA [Suspect]
     Active Substance: LOPINAVIR\RITONAVIR
     Indication: COVID-19
     Dosage: 200 MILLIGRAM, BID
     Route: 065
     Dates: start: 20200523
  6. POTASSIUM CHLORIDE. [Concomitant]
     Active Substance: POTASSIUM CHLORIDE
     Indication: PRODUCT USED FOR UNKNOWN INDICATION
     Dosage: 20 MILLIEQUIVALENT AMP
     Route: 065
     Dates: start: 20200526
  7. AMLODIPINE [Concomitant]
     Active Substance: AMLODIPINE BESYLATE
     Indication: BLOOD PRESSURE MANAGEMENT
     Dosage: 5 MILLIGRAM, BID
     Route: 065
     Dates: start: 202005
  8. SALBUTAMOL [Concomitant]
     Active Substance: ALBUTEROL
     Indication: PRODUCT USED FOR UNKNOWN INDICATION
     Dosage: UNK SPRAY 200 METERED DOSES
     Route: 065
     Dates: start: 20200526
  9. HYDROXYCHLOROQUINE SULFATE TABLETS [Suspect]
     Active Substance: HYDROXYCHLOROQUINE SULFATE
     Indication: COVID-19
     Dosage: 600 MILLIGRAM, QD
     Route: 065
     Dates: start: 20200523
  10. APOTEL [Suspect]
     Active Substance: ACETAMINOPHEN
     Indication: COVID-19
     Dosage: UNK?AMP 150 MG/ML, 6/7 ML TDS
     Route: 065
     Dates: start: 20200523
  11. HYDROCORTISONE. [Concomitant]
     Active Substance: HYDROCORTISONE
     Indication: PRODUCT USED FOR UNKNOWN INDICATION
     Dosage: UNK AMP
     Route: 065
     Dates: start: 20200526
  12. OXYTOCIN. [Suspect]
     Active Substance: OXYTOCIN
     Indication: LABOUR INDUCTION
     Dosage: UNK
     Route: 065
     Dates: start: 20200516
  13. LABETALOL [Suspect]
     Active Substance: LABETALOL\LABETALOL HYDROCHLORIDE
     Indication: BLOOD PRESSURE MANAGEMENT
     Dosage: 20 MILLIGRAM AMP
     Route: 065
     Dates: start: 20200516
  14. PANTOPRAZOLE [Suspect]
     Active Substance: PANTOPRAZOLE
     Indication: PRODUCT USED FOR UNKNOWN INDICATION
     Dosage: 40 MILLIGRAM AMP
     Route: 042
     Dates: start: 20200523
  15. APOTEL [Suspect]
     Active Substance: ACETAMINOPHEN
     Dosage: UNK AMP APOTEL 150 MG/ML
     Route: 065
     Dates: start: 20200525

REACTIONS (3)
  - Off label use [Unknown]
  - Exposure during pregnancy [Unknown]
  - Normal newborn [Unknown]

NARRATIVE: CASE EVENT DATE: 20200516
